FAERS Safety Report 22162864 (Version 2)
Quarter: 2023Q2

REPORT INFORMATION
  Report Type: Spontaneous
  Country: BR (occurrence: BR)
  Receive Date: 20230331
  Receipt Date: 20230411
  Transmission Date: 20230721
  Serious: Yes (Death, Other)
  Sender: FDA-Public Use
  Company Number: BR-009507513-2303BRA010617

PATIENT
  Age: 75 Year
  Sex: Male

DRUGS (3)
  1. PEMBROLIZUMAB [Suspect]
     Active Substance: PEMBROLIZUMAB
     Dates: start: 202108
  2. PEMETREXED [Suspect]
     Active Substance: PEMETREXED
     Dates: start: 202108
  3. CARBOPLATIN [Suspect]
     Active Substance: CARBOPLATIN
     Dates: start: 202108

REACTIONS (20)
  - Death [Fatal]
  - Liver injury [Unknown]
  - Malignant neoplasm progression [Unknown]
  - Nephrolithiasis [Unknown]
  - Performance status decreased [Unknown]
  - Bone lesion [Unknown]
  - Spinal pain [Unknown]
  - Spinal osteoarthritis [Unknown]
  - Renal cyst [Unknown]
  - Cholelithiasis [Unknown]
  - Emphysema [Unknown]
  - Arteriosclerosis [Unknown]
  - Rash [Unknown]
  - Nausea [Unknown]
  - Asthenia [Unknown]
  - Fatigue [Unknown]
  - Sinus congestion [Unknown]
  - Sinusitis [Unknown]
  - Post procedural complication [Unknown]
  - Atelectasis [Unknown]

NARRATIVE: CASE EVENT DATE: 20220210
